FAERS Safety Report 7936174-5 (Version None)
Quarter: 2011Q4

REPORT INFORMATION
  Report Type: 
  Country: None (occurrence: None)
  Receive Date: 20111123
  Receipt Date: 20111121
  Transmission Date: 20120403
  Serious: Yes (Other)
  Sender: FDA-Public Use
  Company Number: US-PFIZER INC-2011285201

PATIENT
  Sex: Male
  Weight: 81.6 kg

DRUGS (6)
  1. WELLBUTRIN [Suspect]
     Dosage: 300 MG, 2X/DAY
     Dates: end: 20110101
  2. ZYPREXA [Suspect]
     Dosage: UNK
     Dates: end: 20110101
  3. EFFEXOR [Suspect]
     Dosage: UNK
     Dates: end: 20110101
  4. AMBIEN [Suspect]
     Dosage: UNK
     Dates: end: 20110101
  5. ADDERALL 5 [Suspect]
     Dosage: 50 MG
     Dates: end: 20110101
  6. LEXAPRO [Suspect]
     Dosage: 20 MG
     Dates: end: 20110101

REACTIONS (2)
  - DEPRESSION SUICIDAL [None]
  - STRESS [None]
